FAERS Safety Report 4285999-9 (Version None)
Quarter: 2004Q1

REPORT INFORMATION
  Report Type: 
  Country: None (occurrence: None)
  Receive Date: 20040205
  Receipt Date: 20040130
  Transmission Date: 20041129
  Serious: Yes (Hospitalization)
  Sender: FDA-Public Use
  Company Number: WAES 0402GBR00036

PATIENT
  Age: 82 Year
  Sex: Female

DRUGS (15)
  1. ACETAMINOPHEN AND CODEINE PHOSPHATE [Concomitant]
     Dates: start: 20031215
  2. FOSAMAX [Suspect]
     Route: 048
     Dates: end: 20040113
  3. ASPIRIN [Suspect]
     Indication: PROPHYLAXIS
     Route: 048
     Dates: start: 20031212, end: 20040112
  4. BENSERAZIDE HYDROCHLORIDE AND LEVODOPA [Concomitant]
     Dates: start: 20031215
  5. CALCIUM CARBONATE AND CHOLECALCIFEROL [Concomitant]
     Dates: start: 20030218
  6. DONEPEZIL HCL [Suspect]
     Dates: start: 20040109, end: 20040113
  7. INDAPAMIDE [Concomitant]
     Dates: start: 20031215
  8. LACTULOSE [Concomitant]
     Dates: start: 20031211
  9. MAGNESIUM HYDROXIDE [Concomitant]
     Dates: start: 20031211
  10. NUTRITIONAL SUPPLEMENTS [Concomitant]
     Route: 048
     Dates: start: 20031212
  11. NUTRITIONAL SUPPLEMENTS [Concomitant]
     Route: 048
     Dates: start: 20031216
  12. VIOXX [Suspect]
     Indication: ANALGESIC EFFECT
     Route: 048
     Dates: start: 20031218, end: 20040112
  13. VIOXX [Suspect]
     Indication: ARTHRALGIA
     Route: 048
     Dates: start: 20031218, end: 20040112
  14. SENNA [Concomitant]
     Dates: start: 20031211
  15. SIMVASTATIN [Concomitant]
     Dates: start: 20031211

REACTIONS (4)
  - GASTRIC ULCER [None]
  - HAEMOGLOBIN DECREASED [None]
  - MELAENA [None]
  - RECTAL HAEMORRHAGE [None]
